FAERS Safety Report 5924386-1 (Version None)
Quarter: 2008Q4

REPORT INFORMATION
  Report Type: 
  Country: None (occurrence: None)
  Receive Date: 20081020
  Receipt Date: 20081016
  Transmission Date: 20090506
  Serious: Yes (Hospitalization)
  Sender: FDA-Public Use
  Company Number: IT-ELI_LILLY_AND_COMPANY-IT200810004005

PATIENT
  Sex: Male

DRUGS (7)
  1. BYETTA [Suspect]
     Dosage: UNK, UNKNOWN
     Route: 065
     Dates: start: 20080101, end: 20080101
  2. METFORMIN HYDROCHLORIDE [Concomitant]
     Dosage: UNK, UNKNOWN
     Route: 065
  3. GLICLAZIDE [Concomitant]
     Dosage: UNK, UNKNOWN
     Route: 065
  4. SIMVASTATIN [Concomitant]
     Dosage: UNK, UNKNOWN
     Route: 065
  5. UNIPRIL [Concomitant]
     Dosage: UNK, UNKNOWN
     Route: 065
  6. BISOPROLOL FUMARATE [Concomitant]
     Dosage: UNK, UNKNOWN
     Route: 065
  7. COUMADIN [Concomitant]
     Dosage: UNK, UNKNOWN
     Route: 065

REACTIONS (2)
  - DISSEMINATED INTRAVASCULAR COAGULATION [None]
  - PANCREATITIS ACUTE [None]
